FAERS Safety Report 8669633 (Version 2)
Quarter: 2012Q4

REPORT INFORMATION
  Report Type: 
  Country: DE (occurrence: DE)
  Receive Date: 20120718
  Receipt Date: 20120923
  Transmission Date: 20130627
  Serious: Yes (Other)
  Sender: FDA-Public Use
  Company Number: DE-US-EMD SERONO, INC.-7147467

PATIENT
  Sex: Female

DRUGS (3)
  1. REBIF [Suspect]
     Indication: MULTIPLE SCLEROSIS
     Route: 058
     Dates: start: 1998
  2. BUDENOFALK [Suspect]
     Indication: CROHN^S DISEASE
     Route: 048
     Dates: start: 201206
  3. PENTASA [Suspect]
     Indication: CROHN^S DISEASE
     Route: 048
     Dates: start: 201206, end: 201207

REACTIONS (4)
  - Crohn^s disease [Unknown]
  - Multiple sclerosis relapse [Unknown]
  - Fatigue [Unknown]
  - Pain [Unknown]
